FAERS Safety Report 8814646 (Version 1)
Quarter: 2012Q4

REPORT INFORMATION
  Report Type: Spontaneous
  Country: GB (occurrence: None)
  Receive Date: 20120926
  Receipt Date: 20120926
  Transmission Date: 20130627
  Serious: Yes (Other)
  Sender: FDA-Public Use
  Company Number: 2012AP002932

PATIENT
  Sex: Male

DRUGS (1)
  1. OMEPRAZOLE (OMEPRAZOLE) [Suspect]
     Indication: DRUG USE FOR UNKNOWN INDICATION

REACTIONS (26)
  - Anaemia [None]
  - Breast disorder male [None]
  - Dyspnoea [None]
  - Confusional state [None]
  - Cellulitis [None]
  - Depression [None]
  - Dry eye [None]
  - Dry mouth [None]
  - Fall [None]
  - Pain [None]
  - Headache [None]
  - Hyperchlorhydria [None]
  - Intestinal haemorrhage [None]
  - Mouth haemorrhage [None]
  - Muscular weakness [None]
  - Osteopenia [None]
  - Erythema [None]
  - Skin burning sensation [None]
  - Oedema peripheral [None]
  - Tremor [None]
  - Angiopathy [None]
  - Visual acuity reduced [None]
  - Photopsia [None]
  - Vitamin D deficiency [None]
  - Vitreous detachment [None]
  - Weight decreased [None]
